FAERS Safety Report 6638342-1 (Version None)
Quarter: 2010Q1

REPORT INFORMATION
  Report Type: 
  Country: None (occurrence: None)
  Receive Date: 20100301
  Receipt Date: 20090529
  Transmission Date: 20100710
  Serious: Yes (Hospitalization)
  Sender: FDA-Public Use
  Company Number: RB-16179-2009

PATIENT
  Age: 26 Year
  Sex: Male

DRUGS (2)
  1. SUBOXONE [Suspect]
     Indication: DRUG DEPENDENCE
     Dosage: 24 MG SUBLINGUAL
     Route: 060
     Dates: start: 20080101
  2. CELEXA [Concomitant]

REACTIONS (4)
  - COLLAPSE OF LUNG [None]
  - CONCUSSION [None]
  - LOWER LIMB FRACTURE [None]
  - ROAD TRAFFIC ACCIDENT [None]
